FAERS Safety Report 17902476 (Version 1)
Quarter: 2020Q2

REPORT INFORMATION
  Report Type: Spontaneous
  Country: SE (occurrence: SE)
  Receive Date: 20200616
  Receipt Date: 20200616
  Transmission Date: 20200714
  Serious: Yes (Hospitalization)
  Sender: FDA-Public Use
  Company Number: SE-PFIZER INC-2020232471

PATIENT
  Age: 63 Year
  Sex: Female

DRUGS (17)
  1. SERETIDE [Concomitant]
     Active Substance: FLUTICASONE PROPIONATE\SALMETEROL XINAFOATE
     Dosage: 2 DF, 2X/DAY (2 INHALATIONS TIMES 2)
     Dates: start: 20171219
  2. BUPRENORPHINE SANDOZ [BUPRENORPHINE] [Concomitant]
     Dosage: 1 UNK, WEEKLY (20 MICROGRAMS/HOUR)
     Dates: start: 20190308
  3. EMGESAN [Concomitant]
     Active Substance: MAGNESIUM HYDROXIDE
     Dosage: 500 MG, 1X/DAY
     Dates: start: 20190425
  4. GABAPENTIN ACTAVIS [Concomitant]
     Active Substance: GABAPENTIN
     Dosage: 300 MG, 1X/DAY
     Dates: start: 20171219
  5. PREDNISOLON ALTERNOVA [Concomitant]
     Active Substance: PREDNISOLONE
     Dosage: 7.5 MG, 1X/DAY
     Dates: start: 20171220
  6. REVATIO [Suspect]
     Active Substance: SILDENAFIL CITRATE
     Indication: PERIPHERAL ISCHAEMIA
     Dosage: 20 MG, 3X/DAY
     Route: 048
     Dates: start: 20181221, end: 20200302
  7. CITALOPRAM ORIFARM [Concomitant]
     Dosage: 20 MG, 1X/DAY
     Dates: start: 20171220
  8. CANODERM [Concomitant]
     Active Substance: UREA
     Dosage: UNK
     Dates: start: 20171220
  9. SPIRIVA [Concomitant]
     Active Substance: TIOTROPIUM BROMIDE MONOHYDRATE
     Dosage: 18 UG, 1X/DAY
     Dates: start: 20171220
  10. ATORVASTATIN TEVA [Concomitant]
     Active Substance: ATORVASTATIN
     Dosage: 20 MG, 1X/DAY
     Dates: start: 20181025
  11. PRIMPERAN [Concomitant]
     Active Substance: METOCLOPRAMIDE HYDROCHLORIDE
     Dosage: 30 MG, 1X/DAY
     Dates: start: 20171219
  12. ALVEDON [Concomitant]
     Active Substance: ACETAMINOPHEN
     Dosage: 4000 MG, 1X/DAY
     Dates: start: 20171219
  13. FOLACIN [FOLIC ACID] [Concomitant]
     Active Substance: FOLIC ACID
     Dosage: 1 MG, 1X/DAY
     Dates: start: 20171220
  14. ZOLEDRONSYRA SUN [Concomitant]
     Active Substance: ZOLEDRONIC ACID
     Dosage: UNK (ACCORDING TO SPECIFIC ORDINATION)
  15. OMEPRAZOL [Concomitant]
     Active Substance: OMEPRAZOLE
     Dosage: 40 MG, 1X/DAY (OMEPRAZOL ABECE )
     Dates: start: 20171220
  16. KALCIPOS-D [Concomitant]
     Active Substance: CALCIUM CARBONATE\CHOLECALCIFEROL
     Dosage: 2 DF, 1X/DAY
     Dates: start: 20190311
  17. BEHEPAN [CYANOCOBALAMIN] [Concomitant]
     Active Substance: CYANOCOBALAMIN
     Dosage: 1 MG, 1X/DAY
     Dates: start: 20181022

REACTIONS (3)
  - Product use in unapproved indication [Unknown]
  - Off label use [Unknown]
  - Generalised oedema [Recovered/Resolved]

NARRATIVE: CASE EVENT DATE: 20190905
